FAERS Safety Report 4611547-7 (Version None)
Quarter: 2005Q1

REPORT INFORMATION
  Report Type: 
  Country: None (occurrence: None)
  Receive Date: 20050317
  Receipt Date: 20050308
  Transmission Date: 20050727
  Serious: Yes (Other)
  Sender: FDA-Public Use
  Company Number: JP-ROCHE-397649

PATIENT
  Age: 27 Year
  Sex: Female

DRUGS (5)
  1. HORIZON [Suspect]
     Indication: STATUS EPILEPTICUS
     Route: 042
     Dates: start: 20030615
  2. DORMICUM (INJ) [Suspect]
     Indication: STATUS EPILEPTICUS
     Route: 042
     Dates: start: 20030615
  3. AMOXAN [Suspect]
     Indication: DRUG USE FOR UNKNOWN INDICATION
     Route: 048
  4. BARBITURATE [Concomitant]
     Indication: STATUS EPILEPTICUS
     Route: 042
     Dates: start: 20030615
  5. PHENYTOIN [Concomitant]
     Indication: STATUS EPILEPTICUS
     Route: 042
     Dates: start: 20030615

REACTIONS (4)
  - BLOOD AMYLASE INCREASED [None]
  - BODY TEMPERATURE INCREASED [None]
  - HEPATIC ENZYME INCREASED [None]
  - SEROTONIN SYNDROME [None]
